FAERS Safety Report 6070392-9 (Version None)
Quarter: 2009Q1

REPORT INFORMATION
  Report Type: 
  Country: None (occurrence: None)
  Receive Date: 20090204
  Receipt Date: 20090115
  Transmission Date: 20090719
  Serious: Yes (Other)
  Sender: FDA-Public Use
  Company Number: 0351

PATIENT
  Age: 20 Year
  Sex: Female

DRUGS (6)
  1. METHYLDOPA [Suspect]
     Indication: HYPERTENSION
     Dosage: PO
     Route: 048
  2. AMLODIPINE BESYLATE [Concomitant]
  3. ASPIRIN [Concomitant]
  4. AZATHIOPRINE [Concomitant]
  5. HYDROXYCHLOROQUINE SULFATE [Concomitant]
  6. PREDNISONE [Concomitant]

REACTIONS (4)
  - AMNIOTIC FLUID VOLUME DECREASED [None]
  - DRUG EXPOSURE DURING PREGNANCY [None]
  - FOETAL GROWTH RETARDATION [None]
  - INTRA-UTERINE DEATH [None]
